FAERS Safety Report 14367880 (Version 40)
Quarter: 2023Q2

REPORT INFORMATION
  Report Type: Report from Study
  Country: CA (occurrence: CA)
  Receive Date: 20180109
  Receipt Date: 20230623
  Transmission Date: 20230722
  Serious: Yes (Hospitalization, Other)
  Sender: FDA-Public Use
  Company Number: PHHY2015CA111727

PATIENT
  Age: 27 Year
  Sex: Female

DRUGS (53)
  1. SANDOSTATIN [Suspect]
     Active Substance: OCTREOTIDE ACETATE
     Indication: Acromegaly
     Dosage: UNK, TID
     Route: 058
     Dates: start: 20110509, end: 201105
  2. SANDOSTATIN [Suspect]
     Active Substance: OCTREOTIDE ACETATE
     Dosage: 30 MILLIGRAM, 3 EVERY 1 DAYS
     Route: 058
  3. SANDOSTATIN [Suspect]
     Active Substance: OCTREOTIDE ACETATE
  4. SANDOSTATIN LAR DEPOT [Suspect]
     Active Substance: OCTREOTIDE ACETATE
     Indication: Acromegaly
     Dosage: 30 MG, QMO (EVERY 4 WEEKS)
     Route: 030
     Dates: start: 2010
  5. SANDOSTATIN LAR DEPOT [Suspect]
     Active Substance: OCTREOTIDE ACETATE
     Dosage: 30 MG, QMO (EVERY 4 WEEKS)
     Route: 030
     Dates: start: 20110523, end: 20180222
  6. SANDOSTATIN LAR DEPOT [Suspect]
     Active Substance: OCTREOTIDE ACETATE
     Dosage: 30 MG, QMO
     Route: 030
     Dates: start: 20111031
  7. SANDOSTATIN LAR DEPOT [Suspect]
     Active Substance: OCTREOTIDE ACETATE
     Dosage: 20 MG, QMO
     Route: 030
  8. SANDOSTATIN LAR DEPOT [Suspect]
     Active Substance: OCTREOTIDE ACETATE
     Dosage: 30 MG, QMO
     Route: 030
     Dates: start: 20171024, end: 20180222
  9. SANDOSTATIN LAR DEPOT [Suspect]
     Active Substance: OCTREOTIDE ACETATE
     Dosage: 30 MG, QMO (EVERY 4 WEEKS)
     Route: 030
     Dates: start: 20190725
  10. SANDOSTATIN LAR DEPOT [Suspect]
     Active Substance: OCTREOTIDE ACETATE
     Dosage: UNK
     Route: 065
     Dates: start: 20191023
  11. SIGNIFOR LAR [Suspect]
     Active Substance: PASIREOTIDE PAMOATE
     Indication: Acromegaly
     Dosage: 30 MG, QMO
     Route: 030
     Dates: start: 20110523
  12. SIGNIFOR LAR [Suspect]
     Active Substance: PASIREOTIDE PAMOATE
     Dosage: 40 MG, QMO
     Route: 030
     Dates: start: 20120101
  13. SIGNIFOR LAR [Suspect]
     Active Substance: PASIREOTIDE PAMOATE
     Dosage: 40 MG, QMO
     Route: 030
     Dates: start: 2012
  14. SIGNIFOR LAR [Suspect]
     Active Substance: PASIREOTIDE PAMOATE
     Dosage: 60 MG, QMO
     Route: 030
     Dates: start: 2012
  15. SIGNIFOR LAR [Suspect]
     Active Substance: PASIREOTIDE PAMOATE
     Dosage: UNK, QMO
     Route: 065
     Dates: start: 2012
  16. SIGNIFOR LAR [Suspect]
     Active Substance: PASIREOTIDE PAMOATE
     Dosage: 60 MG, QMO
     Route: 030
     Dates: start: 20130101, end: 20170508
  17. SIGNIFOR LAR [Suspect]
     Active Substance: PASIREOTIDE PAMOATE
     Dosage: 40 MG, QMO
     Route: 030
  18. SIGNIFOR LAR [Suspect]
     Active Substance: PASIREOTIDE PAMOATE
     Dosage: 60 MG, QMO
     Route: 030
     Dates: end: 20170605
  19. CABERGOLINE [Suspect]
     Active Substance: CABERGOLINE
     Indication: Acromegaly
     Dosage: UNK
     Route: 065
  20. CABERGOLINE [Suspect]
     Active Substance: CABERGOLINE
     Dosage: UNK
     Route: 065
  21. METFORMIN [Concomitant]
     Active Substance: METFORMIN HYDROCHLORIDE
     Indication: Diabetes mellitus
     Dosage: 1 DOSAGE FORM, BID
     Route: 048
  22. METFORMIN [Concomitant]
     Active Substance: METFORMIN HYDROCHLORIDE
     Dosage: UNK
     Route: 048
  23. METFORMIN [Concomitant]
     Active Substance: METFORMIN HYDROCHLORIDE
     Dosage: UNK
     Route: 065
  24. DIABETA [Concomitant]
     Active Substance: GLYBURIDE
     Indication: Product used for unknown indication
     Dosage: UNK
     Route: 065
  25. DIABETA [Concomitant]
     Active Substance: GLYBURIDE
     Dosage: UNK
     Route: 065
  26. INSULIN NOS [Concomitant]
     Active Substance: INSULIN NOS
     Indication: Product used for unknown indication
     Dosage: UNK
     Route: 058
  27. INSULIN NOS [Concomitant]
     Active Substance: INSULIN NOS
     Dosage: GLOBULES ORAL
     Route: 058
  28. INSULIN NOS [Concomitant]
     Active Substance: INSULIN NOS
     Dosage: UNK
     Route: 058
  29. INSULIN NOS [Concomitant]
     Active Substance: INSULIN NOS
     Dosage: UNK
     Route: 058
  30. INSULIN NOS [Concomitant]
     Active Substance: INSULIN NOS
     Dosage: UNK
     Route: 058
  31. INSULIN NOS [Concomitant]
     Active Substance: INSULIN NOS
     Dosage: UNK
     Route: 058
  32. INSULIN NOS [Concomitant]
     Active Substance: INSULIN NOS
     Dosage: UNK
     Route: 058
  33. SYNTHROID [Concomitant]
     Active Substance: LEVOTHYROXINE SODIUM
     Indication: Product used for unknown indication
     Dosage: 1 DOSAGE FORM, QD
     Route: 048
  34. JANUVIA [Concomitant]
     Active Substance: SITAGLIPTIN PHOSPHATE
     Indication: Product used for unknown indication
     Dosage: UNK
     Route: 065
  35. JANUVIA [Concomitant]
     Active Substance: SITAGLIPTIN PHOSPHATE
     Dosage: UNK
     Route: 048
  36. DOSTINEX [Concomitant]
     Active Substance: CABERGOLINE
     Indication: Product used for unknown indication
     Dosage: 1 DOSAGE FORM
     Route: 048
     Dates: start: 2016
  37. FLUCONAZOLE [Concomitant]
     Active Substance: FLUCONAZOLE
     Indication: Product used for unknown indication
     Dosage: 1 DOSAGE FORM, WEEKLY
     Route: 048
  38. NOVORAPID [Concomitant]
     Active Substance: INSULIN ASPART
     Indication: Product used for unknown indication
     Dosage: UNK, OTHER
     Route: 058
  39. NOVORAPID [Concomitant]
     Active Substance: INSULIN ASPART
     Dosage: UNK
     Route: 058
  40. NOVORAPID [Concomitant]
     Active Substance: INSULIN ASPART
     Dosage: UNK
     Route: 058
  41. PMS-CYCLOBENZAPRINE [Concomitant]
     Indication: Product used for unknown indication
     Dosage: 1 DF, PRN
     Route: 048
  42. MIRVALA 21 [Concomitant]
     Indication: Product used for unknown indication
     Dosage: 1 DOSAGE FORM, QD (STRENGTH: 30/150 MCG)
     Route: 048
  43. MIRVALA 21 [Concomitant]
     Dosage: (STRENGTH: 30/150 MCG), QD
     Route: 048
  44. MIRVALA 21 [Concomitant]
     Dosage: 1 DOSAGE FORM, QD (STRENGTH: 30/150 MCG)
     Route: 048
  45. VITAMIN D [Concomitant]
     Active Substance: VITAMIN D NOS
     Indication: Product used for unknown indication
     Dosage: UNK, QD
     Route: 048
  46. VITAMIN D [Concomitant]
     Active Substance: VITAMIN D NOS
     Dosage: UNK, QD
     Route: 048
  47. VITAMIN D [Concomitant]
     Active Substance: VITAMIN D NOS
     Dosage: UNK, QD
     Route: 048
  48. INVOKANA [Concomitant]
     Active Substance: CANAGLIFLOZIN
     Indication: Product used for unknown indication
     Dosage: 1 DF, QD
     Route: 048
  49. GLYBURIDE [Concomitant]
     Active Substance: GLYBURIDE
     Indication: Product used for unknown indication
     Dosage: 1 DOSAGE FORM, BID
     Route: 048
  50. SEMAGLUTIDE [Concomitant]
     Active Substance: SEMAGLUTIDE
     Indication: Product used for unknown indication
     Dosage: 1 DF, QW
     Route: 058
  51. TRAZODONE [Concomitant]
     Active Substance: TRAZODONE HYDROCHLORIDE
     Indication: Product used for unknown indication
     Dosage: UNK
     Route: 065
  52. VENLAFAXINE HYDROCHLORIDE [Concomitant]
     Active Substance: VENLAFAXINE HYDROCHLORIDE
     Indication: Product used for unknown indication
     Dosage: UNK
     Route: 065
  53. VENLAFAXINE [Concomitant]
     Active Substance: VENLAFAXINE HYDROCHLORIDE
     Indication: Product used for unknown indication
     Dosage: UNK
     Route: 065

REACTIONS (36)
  - Abdominal pain [Unknown]
  - Laryngitis bacterial [Unknown]
  - Groin abscess [Unknown]
  - Infectious mononucleosis [Unknown]
  - Sinusitis [Unknown]
  - Facial pain [Unknown]
  - Nasal congestion [Unknown]
  - Headache [Unknown]
  - Blood growth hormone increased [Unknown]
  - Blood pressure diastolic decreased [Unknown]
  - Body temperature decreased [Unknown]
  - Blood pressure increased [Unknown]
  - Insulin-like growth factor increased [Unknown]
  - Cortisol decreased [Unknown]
  - Ligament sprain [Unknown]
  - Back pain [Unknown]
  - Movement disorder [Unknown]
  - Blood cholesterol abnormal [Unknown]
  - Anxiety [Unknown]
  - Stress [Unknown]
  - Abscess [Unknown]
  - Illness [Unknown]
  - COVID-19 [Unknown]
  - Back injury [Unknown]
  - Sciatic nerve injury [Unknown]
  - Muscle spasms [Unknown]
  - Intervertebral disc protrusion [Unknown]
  - Drug resistance [Recovered/Resolved]
  - Heart rate increased [Unknown]
  - Heart rate decreased [Unknown]
  - Oropharyngeal pain [Unknown]
  - Cough [Unknown]
  - Nasopharyngitis [Unknown]
  - Drug ineffective [Recovered/Resolved]
  - Blood pressure systolic increased [Unknown]
  - Subcutaneous abscess [Unknown]

NARRATIVE: CASE EVENT DATE: 20151225
